FAERS Safety Report 7246137-3 (Version None)
Quarter: 2011Q1

REPORT INFORMATION
  Report Type: 
  Country: None (occurrence: None)
  Receive Date: 20110126
  Receipt Date: 20110119
  Transmission Date: 20110831
  Serious: Yes (Life-Threatening, Hospitalization)
  Sender: FDA-Public Use
  Company Number: A0908738A

PATIENT
  Sex: Female

DRUGS (1)
  1. PAXIL [Suspect]
     Indication: NERVOUS SYSTEM DISORDER
     Route: 048
     Dates: start: 19940101, end: 20090101

REACTIONS (10)
  - ALCOHOL USE [None]
  - COMA [None]
  - RENAL FAILURE ACUTE [None]
  - IMPRISONMENT [None]
  - HEPATIC FAILURE [None]
  - ABNORMAL BEHAVIOUR [None]
  - HEPATIC CIRRHOSIS [None]
  - THEFT [None]
  - SUICIDE ATTEMPT [None]
  - PALPITATIONS [None]
